FAERS Safety Report 17818968 (Version 1)
Quarter: 2020Q2

REPORT INFORMATION
  Report Type: Spontaneous
  Country: CN (occurrence: CN)
  Receive Date: 20200522
  Receipt Date: 20200522
  Transmission Date: 20200714
  Serious: Yes (Other)
  Sender: FDA-Public Use
  Company Number: CN-ROCHE-2606445

PATIENT
  Age: 64 Year
  Sex: Male

DRUGS (15)
  1. CYCLOPHOSPHAMIDE. [Concomitant]
     Active Substance: CYCLOPHOSPHAMIDE
     Indication: DIFFUSE LARGE B-CELL LYMPHOMA
     Dosage: R-CHOP REGIMEN X 6 CYCLES
     Route: 065
     Dates: start: 201810
  2. DOXORUBICIN [Concomitant]
     Active Substance: DOXORUBICIN
     Indication: B-CELL LYMPHOMA
     Dosage: R-VCDP REGIMEN, D8
     Route: 065
     Dates: start: 20200507
  3. PREDNISONE. [Concomitant]
     Active Substance: PREDNISONE
     Indication: B-CELL LYMPHOMA
     Dosage: R-VCDP REGIMEN, D1-7
     Route: 065
     Dates: start: 20200507
  4. VINDESINE [Concomitant]
     Active Substance: VINDESINE
     Indication: B-CELL LYMPHOMA
     Dosage: R-VCDP REGIMEN, D1
     Route: 065
     Dates: start: 20200507
  5. ZOPICLONE [Concomitant]
     Active Substance: ZOPICLONE
     Indication: SLEEP DISORDER
     Route: 048
  6. MABTHERA [Suspect]
     Active Substance: RITUXIMAB
     Indication: B-CELL LYMPHOMA
     Dosage: R-VCDP REGIMEN, D0
     Route: 065
     Dates: start: 20200507
  7. CYCLOPHOSPHAMIDE. [Concomitant]
     Active Substance: CYCLOPHOSPHAMIDE
     Dosage: R-VCDP REGIMEN, D1
     Route: 065
     Dates: start: 20200507
  8. VINDESINE [Concomitant]
     Active Substance: VINDESINE
     Indication: DIFFUSE LARGE B-CELL LYMPHOMA
     Dosage: R-CHOP REGIMEN X 6 CYCLES
     Route: 065
     Dates: start: 201810
  9. DEXAMETHASONE. [Concomitant]
     Active Substance: DEXAMETHASONE
     Indication: B-CELL LYMPHOMA
  10. DEXAMETHASONE. [Concomitant]
     Active Substance: DEXAMETHASONE
     Indication: DIFFUSE LARGE B-CELL LYMPHOMA
     Dosage: PRETREATMENT, 20 MG PER DAY X 6 DAYS
     Route: 065
     Dates: start: 20200501, end: 20200506
  11. PREDNISONE. [Concomitant]
     Active Substance: PREDNISONE
     Indication: DIFFUSE LARGE B-CELL LYMPHOMA
     Dosage: R-CHOP REGIMEN X 6 CYCLES
     Route: 065
     Dates: start: 201810
  12. DOXORUBICIN [Concomitant]
     Active Substance: DOXORUBICIN
     Indication: DIFFUSE LARGE B-CELL LYMPHOMA
     Dosage: R-CHOP REGIMEN X 6 CYCLES
     Route: 065
     Dates: start: 201810
  13. MABTHERA [Suspect]
     Active Substance: RITUXIMAB
     Indication: DIFFUSE LARGE B-CELL LYMPHOMA
     Dosage: R-CHOP REGIMEN X 6 CYCLES
     Route: 065
     Dates: start: 201810
  14. CYCLOPHOSPHAMIDE. [Concomitant]
     Active Substance: CYCLOPHOSPHAMIDE
     Indication: B-CELL LYMPHOMA
     Dosage: PRETREATMENT, 400 MG PER DAY X 3 DAYS
     Route: 065
     Dates: start: 202005, end: 202005
  15. PREDNISONE. [Concomitant]
     Active Substance: PREDNISONE
     Dosage: R-VCDP REGIMEN, D8-14, 1 MG/KG PER DAY
     Route: 065
     Dates: start: 20200507

REACTIONS (2)
  - Pneumonitis [Unknown]
  - Venous thrombosis limb [Unknown]
